FAERS Safety Report 9614636 (Version 1)
Quarter: 2013Q4

REPORT INFORMATION
  Report Type: Spontaneous
  Country: US (occurrence: None)
  Receive Date: 20131009
  Receipt Date: 20131009
  Transmission Date: 20140711
  Serious: Yes (Other)
  Sender: FDA-Public Use
  Company Number: None

PATIENT
  Age: 87 Year
  Sex: Female
  Weight: 68.2 kg

DRUGS (1)
  1. DICLOFENAC SODIUIM [Suspect]
     Indication: PAIN
     Route: 048
     Dates: start: 20130819, end: 20130904

REACTIONS (2)
  - Vision blurred [None]
  - Hallucination [None]
